FAERS Safety Report 16414448 (Version 1)
Quarter: 2019Q2

REPORT INFORMATION
  Report Type: Spontaneous
  Country: FR (occurrence: FR)
  Receive Date: 20190611
  Receipt Date: 20190611
  Transmission Date: 20190711
  Serious: Yes (Hospitalization, Other)
  Sender: FDA-Public Use
  Company Number: FR-PFIZER INC-2019244260

PATIENT
  Age: 81 Year
  Sex: Female
  Weight: 73 kg

DRUGS (5)
  1. ROACTEMRA [Suspect]
     Active Substance: TOCILIZUMAB
     Indication: TEMPORAL ARTERITIS
     Dosage: 1 MG/KG, UNK
     Route: 048
     Dates: start: 20190423, end: 20190423
  2. CORTANCYL [Suspect]
     Active Substance: PREDNISONE
     Indication: TEMPORAL ARTERITIS
     Dosage: 30 MG, DAILY
     Route: 048
     Dates: start: 20190423
  3. CORTANCYL [Suspect]
     Active Substance: PREDNISONE
     Dosage: 15 MG, DAILY
  4. SOLU-MEDROL [Suspect]
     Active Substance: METHYLPREDNISOLONE SODIUM SUCCINATE
     Indication: TEMPORAL ARTERITIS
     Dosage: 120 MG, DAILY
     Route: 040
     Dates: start: 20190420, end: 20190422
  5. CORTANCYL [Suspect]
     Active Substance: PREDNISONE
     Dosage: 20 MG, DAILY

REACTIONS (3)
  - Off label use [Unknown]
  - Product use in unapproved indication [Unknown]
  - Tenosynovitis [Recovering/Resolving]

NARRATIVE: CASE EVENT DATE: 20190503
